FAERS Safety Report 9818574 (Version 2)
Quarter: 2014Q1

REPORT INFORMATION
  Report Type: Spontaneous
  Country: US (occurrence: None)
  Receive Date: 20131223
  Receipt Date: 20140228
  Transmission Date: 20141002
  Serious: Yes (Other)
  Sender: FDA-Public Use
  Company Number: 221856

PATIENT
  Age: 63 Year
  Sex: Female

DRUGS (3)
  1. PICATO GEL [Suspect]
     Indication: ACTINIC KERATOSIS
     Route: 061
     Dates: start: 20130510, end: 20130512
  2. PRILOSEC [Concomitant]
  3. VIVELLE (ESTRADIOL) [Concomitant]

REACTIONS (5)
  - Application site pain [None]
  - Eye discharge [None]
  - Drug administered at inappropriate site [None]
  - Application site dryness [None]
  - Application site pain [None]
